FAERS Safety Report 5975085-1 (Version None)
Quarter: 2008Q4

REPORT INFORMATION
  Report Type: 
  Country: None (occurrence: None)
  Receive Date: 20081202
  Receipt Date: 20081127
  Transmission Date: 20090506
  Serious: Yes (Death, Life-Threatening, Hospitalization)
  Sender: FDA-Public Use
  Company Number: FR-BRISTOL-MYERS SQUIBB COMPANY-14397368

PATIENT
  Age: 62 Year
  Sex: Female
  Weight: 102 kg

DRUGS (3)
  1. TAXOL [Suspect]
     Dosage: THERAPY START DATE: 06OCT08; 1 DOSAGE FORM= 80MG/ML.
     Route: 042
     Dates: start: 20081013, end: 20081013
  2. AVASTIN [Suspect]
     Route: 042
     Dates: start: 20081006, end: 20081006
  3. MEDROL [Concomitant]

REACTIONS (8)
  - ALOPECIA [None]
  - CAPILLARY LEAK SYNDROME [None]
  - DEATH [None]
  - DIABETES MELLITUS [None]
  - DISSEMINATED INTRAVASCULAR COAGULATION [None]
  - ERYTHEMA MULTIFORME [None]
  - MUCOSAL INFLAMMATION [None]
  - NEUROTOXICITY [None]
